FAERS Safety Report 9848464 (Version 1)
Quarter: 2014Q1

REPORT INFORMATION
  Report Type: Spontaneous
  Country: US (occurrence: None)
  Receive Date: 20140127
  Receipt Date: 20140127
  Transmission Date: 20141002
  Serious: Yes (Hospitalization)
  Sender: FDA-Public Use
  Company Number: None

PATIENT
  Age: 62 Year
  Sex: Female

DRUGS (1)
  1. STIVARGA [Suspect]
     Indication: COLORECTAL CANCER
     Route: 048
     Dates: start: 20131203, end: 20140115

REACTIONS (5)
  - Pyrexia [None]
  - Rash [None]
  - Hepatic function abnormal [None]
  - Blood sodium decreased [None]
  - Platelet count decreased [None]
